FAERS Safety Report 13503334 (Version 1)
Quarter: 2017Q2

REPORT INFORMATION
  Report Type: Spontaneous
  Country: US (occurrence: US)
  Receive Date: 20170502
  Receipt Date: 20170502
  Transmission Date: 20170830
  Serious: Yes (Disabling)
  Sender: FDA-Public Use
  Company Number: None

PATIENT
  Age: 58 Year
  Sex: Female
  Weight: 87.75 kg

DRUGS (7)
  1. TURMERIC [Concomitant]
     Active Substance: HERBALS\TURMERIC
  2. FISH OIL [Concomitant]
     Active Substance: FISH OIL
  3. BROMELAIN [Concomitant]
     Active Substance: BROMELAINS
  4. CALCIUM MAGNESIUM [Concomitant]
     Active Substance: CALCIUM\MAGNESIUM
  5. LEVOTHYROXINE. [Concomitant]
     Active Substance: LEVOTHYROXINE
  6. AZITHROMYCIN 250 MG [Suspect]
     Active Substance: AZITHROMYCIN ANHYDROUS
     Indication: PROPHYLAXIS
     Dosage: ?          QUANTITY:12 TABLET(S);?
     Route: 048
     Dates: start: 20170109, end: 20170119
  7. B VITAMINS [Concomitant]
     Active Substance: CYANOCOBALAMIN\DEXPANTHENOL\NIACINAMIDE\PYRIDOXINE HYDROCHLORIDE\RIBOFLAVIN 5^-PHOSPHATE SODIUM\THIAMINE HYDROCHLORIDE\VITAMIN B COMPLEX

REACTIONS (6)
  - Swelling [None]
  - Fear [None]
  - Inflammation [None]
  - Gait disturbance [None]
  - Arthralgia [None]
  - Depression [None]

NARRATIVE: CASE EVENT DATE: 20170115
